FAERS Safety Report 13666539 (Version 1)
Quarter: 2017Q2

REPORT INFORMATION
  Report Type: Spontaneous
  Country: US (occurrence: US)
  Receive Date: 20170619
  Receipt Date: 20170619
  Transmission Date: 20170830
  Serious: No
  Sender: FDA-Public Use
  Company Number: US-ROCHE-1383964

PATIENT
  Sex: Male

DRUGS (9)
  1. XELODA [Suspect]
     Active Substance: CAPECITABINE
     Indication: COLON CANCER
     Dosage: 14 DAYS ON AND  7 DAYS OFF.
     Route: 048
     Dates: start: 20140228
  2. PRAVASTATIN. [Concomitant]
     Active Substance: PRAVASTATIN
  3. SERTRALINE [Concomitant]
     Active Substance: SERTRALINE HYDROCHLORIDE
  4. SPIRIVA [Concomitant]
     Active Substance: TIOTROPIUM BROMIDE MONOHYDRATE
  5. OMEPRAZOLE. [Concomitant]
     Active Substance: OMEPRAZOLE
  6. ADVAIR HFA [Concomitant]
     Active Substance: FLUTICASONE PROPIONATE\SALMETEROL XINAFOATE
  7. ALBUTEROL. [Concomitant]
     Active Substance: ALBUTEROL
  8. XELODA [Suspect]
     Active Substance: CAPECITABINE
     Indication: COLON CANCER
  9. XELODA [Suspect]
     Active Substance: CAPECITABINE
     Indication: RECTAL CANCER

REACTIONS (1)
  - Stomatitis [Recovering/Resolving]
